FAERS Safety Report 5911907-8 (Version None)
Quarter: 2008Q4

REPORT INFORMATION
  Report Type: 
  Country: None (occurrence: None)
  Receive Date: 20081003
  Receipt Date: 20080921
  Transmission Date: 20090506
  Serious: Yes (Death)
  Sender: FDA-Public Use
  Company Number: CLOF-1000134

PATIENT
  Age: 9 Year
  Sex: Female

DRUGS (1)
  1. CLOFARABINE (CLOFARABINE) SOLUTION FOR INFUSION [Suspect]
     Indication: ACUTE LEUKAEMIA
     Dosage: 52 MG/M2, QDX5

REACTIONS (6)
  - DISEASE PROGRESSION [None]
  - DISEASE RECURRENCE [None]
  - EPSTEIN-BARR VIRUS INFECTION [None]
  - HEPATITIS [None]
  - LEUKOCYTOSIS [None]
  - RESPIRATORY ARREST [None]
